FAERS Safety Report 8816842 (Version 1)
Quarter: 2012Q4

REPORT INFORMATION
  Report Type: Spontaneous
  Country: US (occurrence: None)
  Receive Date: 20121002
  Receipt Date: 20121002
  Transmission Date: 20130627
  Serious: Yes (Hospitalization, Other)
  Sender: FDA-Public Use
  Company Number: None

PATIENT
  Age: 18 Year
  Sex: Female
  Weight: 45.36 kg

DRUGS (1)
  1. MIRENA [Suspect]
     Indication: BIRTH CONTROL
     Dosage: one insertion every five years
     Dates: start: 20090301, end: 20090901

REACTIONS (6)
  - Device dislocation [None]
  - Vaginal haemorrhage [None]
  - Bone pain [None]
  - Complication of device removal [None]
  - Pain [None]
  - Vaginal operation [None]
